FAERS Safety Report 5040939-X (Version None)
Quarter: 2006Q2

REPORT INFORMATION
  Report Type: 
  Country: None (occurrence: None)
  Receive Date: 20060630
  Receipt Date: 20060630
  Transmission Date: 20061013
  Serious: Yes (Hospitalization)
  Sender: FDA-Public Use
  Company Number: None

PATIENT
  Sex: Male
  Weight: 65 kg

DRUGS (2)
  1. CYTARABINE [Suspect]
     Dosage: 21940 MG
     Dates: start: 20060603
  2. DAUNORUBICIN HCL [Suspect]
     Dosage: 645 MG
     Dates: start: 20060407

REACTIONS (23)
  - BLOOD PRESSURE INCREASED [None]
  - CHEST DISCOMFORT [None]
  - CHOLANGITIS [None]
  - CHOLECYSTITIS [None]
  - CHOLELITHIASIS [None]
  - CHOLESTASIS [None]
  - CONSTIPATION [None]
  - DIVERTICULUM [None]
  - EPISTAXIS [None]
  - ERYTHEMA [None]
  - HAEMATOCRIT DECREASED [None]
  - HAEMOGLOBIN DECREASED [None]
  - HEART RATE INCREASED [None]
  - HIATUS HERNIA [None]
  - MUCOSAL DRYNESS [None]
  - PANCREATITIS [None]
  - PERICARDIAL EFFUSION [None]
  - PETECHIAE [None]
  - PLATELET COUNT DECREASED [None]
  - RED BLOOD CELL COUNT DECREASED [None]
  - RESPIRATORY RATE INCREASED [None]
  - TROPONIN I INCREASED [None]
  - WHITE BLOOD CELL COUNT DECREASED [None]
